FAERS Safety Report 12455136 (Version 1)
Quarter: 2016Q2

REPORT INFORMATION
  Report Type: Spontaneous
  Country: US (occurrence: None)
  Receive Date: 20160609
  Receipt Date: 20160609
  Transmission Date: 20160815
  Serious: Yes (Other)
  Sender: FDA-Public Use
  Company Number: None

PATIENT
  Age: 31 Year
  Sex: Male
  Weight: 77.11 kg

DRUGS (3)
  1. FLONASE [Concomitant]
     Active Substance: FLUTICASONE PROPIONATE
  2. FINASTERIDE, 5MG [Suspect]
     Active Substance: FINASTERIDE
     Indication: ALOPECIA
     Route: 048
     Dates: start: 20160324, end: 20160404
  3. ZYRTEC [Concomitant]
     Active Substance: CETIRIZINE HYDROCHLORIDE

REACTIONS (9)
  - Feeling abnormal [None]
  - Ejaculation disorder [None]
  - Testicular pain [None]
  - Dizziness [None]
  - Presyncope [None]
  - Sexual inhibition [None]
  - Erectile dysfunction [None]
  - Anorgasmia [None]
  - Genital atrophy [None]

NARRATIVE: CASE EVENT DATE: 20160412
